FAERS Safety Report 5115649-0 (Version None)
Quarter: 2006Q3

REPORT INFORMATION
  Report Type: 
  Country: None (occurrence: None)
  Receive Date: 20060927
  Receipt Date: 20060921
  Transmission Date: 20061208
  Serious: Yes (Other)
  Sender: FDA-Public Use
  Company Number: US-BRISTOL-MYERS SQUIBB COMPANY-13517974

PATIENT
  Sex: Male
  Weight: 134 kg

DRUGS (9)
  1. COUMADIN [Suspect]
     Indication: DEEP VEIN THROMBOSIS
     Dosage: CURRENT DOSAGE IS 12.5 MG ALTERNATING WITH 11.5 MG
     Dates: start: 20051001
  2. DILANTIN [Concomitant]
     Indication: CONVULSION
     Dosage: COUMADIN: 12.5MG (7.5+5MG) ALTERNATING WITH 11.5MG (7.5MG+4MG)
  3. CARBATROL [Concomitant]
     Dates: start: 20060801
  4. LYRICA [Concomitant]
     Dates: start: 20060201
  5. KEPPRA [Concomitant]
     Dates: start: 20051001, end: 20060801
  6. TOPAMAX [Concomitant]
  7. DIOVAN [Concomitant]
  8. VYTORIN [Concomitant]
  9. LOVENOX [Concomitant]

REACTIONS (2)
  - CONVULSION [None]
  - INTERNATIONAL NORMALISED RATIO DECREASED [None]
